FAERS Safety Report 14425150 (Version 4)
Quarter: 2018Q2

REPORT INFORMATION
  Report Type: Report from Study
  Country: FR (occurrence: FR)
  Receive Date: 20180123
  Receipt Date: 20180622
  Transmission Date: 20180711
  Serious: Yes (Life-Threatening, Hospitalization, Other)
  Sender: FDA-Public Use
  Company Number: FR-INCYTE CORPORATION-2018IN000481

PATIENT

DRUGS (1)
  1. JAKAVI [Suspect]
     Active Substance: RUXOLITINIB
     Indication: MYELOFIBROSIS
     Dosage: 30 MG, QD
     Route: 048
     Dates: start: 20140418

REACTIONS (13)
  - White blood cell count increased [Unknown]
  - Dyspnoea [Unknown]
  - Base excess increased [Unknown]
  - Hyperkalaemia [Recovered/Resolved]
  - Hyperkalaemia [Unknown]
  - Shock haemorrhagic [Recovered/Resolved]
  - Renal amyloidosis [Not Recovered/Not Resolved]
  - Blood urea increased [Unknown]
  - Aortic stenosis [Unknown]
  - Retroperitoneal haematoma [Not Recovered/Not Resolved]
  - Renal failure [Not Recovered/Not Resolved]
  - Glomerular filtration rate decreased [Unknown]
  - Diplopia [Unknown]

NARRATIVE: CASE EVENT DATE: 20160909
